FAERS Safety Report 8735095 (Version 4)
Quarter: 2013Q3

REPORT INFORMATION
  Report Type: Spontaneous
  Country: CA (occurrence: CA)
  Receive Date: 20120821
  Receipt Date: 20130705
  Transmission Date: 20140515
  Serious: Yes (Other)
  Sender: FDA-Public Use
  Company Number: CHPA2012CA003607

PATIENT
  Age: 87 Year
  Sex: Male

DRUGS (2)
  1. EXCEDRIN EXTRA STRENGTH - CA [Suspect]
     Indication: ARTHRITIS
     Dosage: 500 MG, QD
     Route: 048
  2. EXCEDRIN EXTRA STRENGTH - CA [Suspect]
     Indication: HEADACHE

REACTIONS (4)
  - Drug dependence [Unknown]
  - Off label use [Unknown]
  - Incorrect drug administration duration [Unknown]
  - No adverse event [Unknown]
